FAERS Safety Report 24038967 (Version 1)
Quarter: 2024Q3

REPORT INFORMATION
  Report Type: Spontaneous
  Country: US (occurrence: US)
  Receive Date: 20240702
  Receipt Date: 20240702
  Transmission Date: 20241017
  Serious: Yes (Death, Life-Threatening, Hospitalization, Other)
  Sender: CELLTRION
  Company Number: US-CELLTRION INC.-2024US015732

PATIENT

DRUGS (1)
  1. RITUXIMAB [Suspect]
     Active Substance: RITUXIMAB
     Indication: Polymyositis
     Dosage: HE RECEIVED HIS LAST DOSE OF RITUXIMAB TWO WEEKS BEFORE PRESENTATION

REACTIONS (5)
  - Immunodeficiency [Unknown]
  - Organising pneumonia [Fatal]
  - Respiratory failure [Fatal]
  - Breakthrough COVID-19 [Recovered/Resolved]
  - Intentional product use issue [Unknown]
